FAERS Safety Report 12658919 (Version 1)
Quarter: 2016Q3

REPORT INFORMATION
  Report Type: Spontaneous
  Country: US (occurrence: None)
  Receive Date: 20160816
  Receipt Date: 20160816
  Transmission Date: 20161109
  Serious: Yes (Disabling)
  Sender: FDA-Public Use
  Company Number: None

PATIENT
  Age: 58 Year
  Sex: Male
  Weight: 81.65 kg

DRUGS (6)
  1. COQ10 [Concomitant]
     Active Substance: UBIDECARENONE
  2. CENTRUM [Concomitant]
     Active Substance: VITAMINS
  3. ROSUVASTATIN ACTAVIS [Suspect]
     Active Substance: ROSUVASTATIN
     Indication: BLOOD CHOLESTEROL INCREASED
     Dosage: 5 MG 1 PER DAY  (30 DAY SUPP) 1- DAY BY MOUTH
     Route: 048
     Dates: start: 20160717, end: 20160724
  4. AMLODIPINE BESYLATE. [Concomitant]
     Active Substance: AMLODIPINE BESYLATE
  5. FISH OIL [Concomitant]
     Active Substance: FISH OIL
  6. NIACIN. [Concomitant]
     Active Substance: NIACIN

REACTIONS (8)
  - Muscle spasms [None]
  - Rash [None]
  - Somnolence [None]
  - Arthralgia [None]
  - Impaired driving ability [None]
  - Impaired work ability [None]
  - Petechiae [None]
  - Mobility decreased [None]

NARRATIVE: CASE EVENT DATE: 20160722
